FAERS Safety Report 17035861 (Version 1)
Quarter: 2019Q4

REPORT INFORMATION
  Report Type: Spontaneous
  Country: US (occurrence: US)
  Receive Date: 20191115
  Receipt Date: 20191115
  Transmission Date: 20200122
  Serious: No
  Sender: FDA-Public Use
  Company Number: US-SUNOVION-2019SUN004827

PATIENT

DRUGS (2)
  1. LATUDA [Suspect]
     Active Substance: LURASIDONE HYDROCHLORIDE
     Dosage: UNK
     Route: 048
  2. LATUDA [Suspect]
     Active Substance: LURASIDONE HYDROCHLORIDE
     Dosage: HALF A PIL
     Route: 048

REACTIONS (5)
  - Nausea [Unknown]
  - Tremor [Unknown]
  - Somnolence [Unknown]
  - Hot flush [Unknown]
  - Wrong technique in product usage process [Unknown]
